FAERS Safety Report 10533787 (Version 1)
Quarter: 2014Q4

REPORT INFORMATION
  Report Type: Spontaneous
  Country: CH (occurrence: None)
  Receive Date: 20141020
  Receipt Date: 20141020
  Transmission Date: 20150529
  Serious: Yes (Hospitalization, Other)
  Sender: FDA-Public Use
  Company Number: 2014100032

PATIENT
  Age: 64 Year
  Sex: Male

DRUGS (11)
  1. TOREM [Suspect]
     Active Substance: TORSEMIDE
     Route: 048
     Dates: end: 2014
  2. AMLODIPIN SPIRIG HC 5 MG (AMLODIPINE BESILATE) [Concomitant]
  3. PANTOZOL 40 MG (PANTOPRAZOLE SODIUM) [Concomitant]
  4. RAMIPRIKL ZENTIVA 10 MG (RAMIPRIL) [Concomitant]
  5. TARGIN REATARD 5/2.5 MG (OXYCODONE HYDROCHLORIDE, NALOXONE HYDROCHLORIDE) [Concomitant]
  6. ACLASTA [Suspect]
     Active Substance: ZOLEDRONIC ACID
     Indication: OSTEOPOROSIS
     Dosage: (0.05 MG, 1 IN 1) NOT OTHERWISE SPECIFIED
     Route: 042
     Dates: start: 201408
  7. ATORVASTATIN SANDOZ 40 MG (ATORVASTATIN) [Concomitant]
  8. MARCOUMAR 3 MG TBL (PHENPROCOUMON) [Concomitant]
  9. LYRICA 150 MG (PREGABALIN) [Concomitant]
  10. METO ZEROK RETARD 95 MG (METOPROLOL SUCCINATE) [Concomitant]
  11. PRADIF T RETARD 0.4 MG (TAMSULOSIN HYDROCHLORIDE) [Concomitant]

REACTIONS (2)
  - Renal tubular necrosis [None]
  - Acute kidney injury [None]

NARRATIVE: CASE EVENT DATE: 20140910
